FAERS Safety Report 7276265-8 (Version None)
Quarter: 2011Q1

REPORT INFORMATION
  Report Type: 
  Country: None (occurrence: None)
  Receive Date: 20110204
  Receipt Date: 20110131
  Transmission Date: 20110831
  Serious: Yes (Death)
  Sender: FDA-Public Use
  Company Number: US-MEDIMMUNE-MEDI-0012209

PATIENT
  Sex: Male
  Weight: 4.26 kg

DRUGS (4)
  1. SYNAGIS [Suspect]
  2. LACTULOSE [Concomitant]
     Indication: CONSTIPATION
  3. SYNAGIS [Suspect]
  4. SYNAGIS [Suspect]
     Indication: BRONCHOPULMONARY DYSPLASIA
     Route: 030
     Dates: start: 20101119, end: 20101215

REACTIONS (1)
  - DEATH [None]
